FAERS Safety Report 9804775 (Version 1)
Quarter: 2014Q1

REPORT INFORMATION
  Report Type: Spontaneous
  Country: US (occurrence: US)
  Receive Date: 20140108
  Receipt Date: 20140108
  Transmission Date: 20141002
  Serious: Yes (Hospitalization, Other)
  Sender: FDA-Public Use
  Company Number: US-RB-062319-14

PATIENT
  Age: 0 None
  Sex: Male

DRUGS (3)
  1. SUBOXONE FILM [Suspect]
     Indication: DRUG DEPENDENCE
     Dosage: SUBOXONE FILM
     Route: 064
     Dates: start: 201206, end: 2012
  2. BUPRENORPHINE GENERIC [Suspect]
     Indication: DRUG DEPENDENCE
     Route: 064
     Dates: start: 2012, end: 20130313
  3. NICOTINE [Suspect]
     Indication: NICOTINE DEPENDENCE
     Dosage: 20 CIGARETTE/DAY
     Route: 064
     Dates: start: 201206, end: 20130313

REACTIONS (3)
  - Foetal exposure during pregnancy [Recovered/Resolved]
  - Dehydration [Recovered/Resolved]
  - Medical observation [Recovered/Resolved]
